FAERS Safety Report 25196409 (Version 1)
Quarter: 2025Q2

REPORT INFORMATION
  Report Type: Spontaneous
  Country: AT (occurrence: AT)
  Receive Date: 20250415
  Receipt Date: 20250415
  Transmission Date: 20250717
  Serious: Yes (Other)
  Sender: MERCK SHARP & DOHME LLC
  Company Number: None

PATIENT
  Age: 7 Year
  Sex: Male
  Weight: 21 kg

DRUGS (1)
  1. FOSAPREPITANT DIMEGLUMINE [Suspect]
     Active Substance: FOSAPREPITANT DIMEGLUMINE
     Route: 042
     Dates: start: 20250324

REACTIONS (2)
  - Oxygen saturation decreased [Recovered/Resolved]
  - Dyspnoea [Recovered/Resolved]

NARRATIVE: CASE EVENT DATE: 20250324
